FAERS Safety Report 18299266 (Version 1)
Quarter: 2020Q3

REPORT INFORMATION
  Report Type: Spontaneous
  Country: US (occurrence: US)
  Receive Date: 20200922
  Receipt Date: 20200922
  Transmission Date: 20201103
  Serious: Yes (Hospitalization)
  Sender: FDA-Public Use
  Company Number: US-TEVA-2020-US-1830497

PATIENT
  Sex: Male

DRUGS (5)
  1. OXYMORPHONE HCL ER [Suspect]
     Active Substance: OXYMORPHONE HYDROCHLORIDE
     Dosage: EXTENDED RELEASE
     Route: 065
  2. TRAMADOL. [Suspect]
     Active Substance: TRAMADOL
     Route: 065
  3. SERTRALINE [Suspect]
     Active Substance: SERTRALINE HYDROCHLORIDE
     Route: 065
  4. LORAZEPAM. [Suspect]
     Active Substance: LORAZEPAM
     Route: 065
  5. OPANA [Suspect]
     Active Substance: OXYMORPHONE HYDROCHLORIDE
     Route: 065

REACTIONS (5)
  - Impaired work ability [Unknown]
  - Lethargy [Unknown]
  - Withdrawal syndrome [Unknown]
  - Intestinal obstruction [Unknown]
  - Confusional state [Unknown]
